FAERS Safety Report 5460357-X (Version None)
Quarter: 2007Q3

REPORT INFORMATION
  Report Type: 
  Country: None (occurrence: None)
  Receive Date: 20070919
  Receipt Date: 20070625
  Transmission Date: 20080115
  Serious: No
  Sender: FDA-Public Use
  Company Number: US-ASTRAZENECA-2007UW15058

PATIENT
  Age: 24 Year
  Sex: Female

DRUGS (5)
  1. SEROQUEL [Suspect]
     Indication: ANXIETY
     Dosage: 100 MG HS AND 25 MG PRN
     Route: 048
     Dates: end: 20070124
  2. SEROQUEL [Suspect]
     Indication: AGITATION
     Dosage: 100 MG HS AND 25 MG PRN
     Route: 048
     Dates: end: 20070124
  3. SEROQUEL [Suspect]
     Route: 048
     Dates: start: 20070515
  4. SEROQUEL [Suspect]
     Route: 048
     Dates: start: 20070515
  5. WELLBUTRIN [Suspect]

REACTIONS (3)
  - DELUSION [None]
  - DRUG EXPOSURE DURING PREGNANCY [None]
  - MANIA [None]
